FAERS Safety Report 15284393 (Version 1)
Quarter: 2018Q3

REPORT INFORMATION
  Report Type: Spontaneous
  Country: US (occurrence: US)
  Receive Date: 20180816
  Receipt Date: 20180816
  Transmission Date: 20181010
  Serious: Yes (Hospitalization, Other)
  Sender: FDA-Public Use
  Company Number: US-SA-2018SA155321

PATIENT
  Age: 28 Year
  Sex: Female
  Weight: 122.47 kg

DRUGS (5)
  1. AMBIEN [Suspect]
     Active Substance: ZOLPIDEM TARTRATE
     Indication: CROHN^S DISEASE
     Dosage: 40 MG
     Route: 058
     Dates: start: 2018
  2. MODAFINIL. [Concomitant]
     Active Substance: MODAFINIL
     Indication: NARCOLEPSY
     Dosage: UNK UNK, UNK
     Route: 065
  3. PROBIOTIC [BIFIDOBACTERIUM LACTIS] [Concomitant]
     Indication: PRODUCT USED FOR UNKNOWN INDICATION
     Dosage: UNK UNK, UNK
     Route: 065
  4. HUMIRA [Suspect]
     Active Substance: ADALIMUMAB
     Indication: CROHN^S DISEASE
     Dosage: 40 MG, BID
     Route: 058
     Dates: start: 2018
  5. FENTANYL. [Concomitant]
     Active Substance: FENTANYL
     Indication: PRODUCT USED FOR UNKNOWN INDICATION
     Dosage: UNK UNK, UNK
     Route: 065

REACTIONS (9)
  - Overdose [Recovered/Resolved]
  - Vaginal discharge [Not Recovered/Not Resolved]
  - Pericardial effusion [Not Recovered/Not Resolved]
  - Bacterial vaginosis [Not Recovered/Not Resolved]
  - Eczema vesicular [Recovered/Resolved]
  - Blood iron decreased [Recovering/Resolving]
  - Depression [Recovering/Resolving]
  - Fungal infection [Not Recovered/Not Resolved]
  - Suicide attempt [Recovering/Resolving]

NARRATIVE: CASE EVENT DATE: 2018
